FAERS Safety Report 7272421-3 (Version None)
Quarter: 2011Q1

REPORT INFORMATION
  Report Type: 
  Country: None (occurrence: None)
  Receive Date: 20110203
  Receipt Date: 20110128
  Transmission Date: 20110831
  Serious: Yes (Hospitalization)
  Sender: FDA-Public Use
  Company Number: SE-BAYER-201014810GPV

PATIENT
  Sex: Male

DRUGS (7)
  1. BETAFERON [Suspect]
     Indication: SECONDARY PROGRESSIVE MULTIPLE SCLEROSIS
     Route: 058
     Dates: start: 19970101
  2. SALURES [Concomitant]
     Indication: HYPERTENSION
     Route: 048
  3. FESOTERODINE [Concomitant]
     Route: 048
  4. ALVEDON [Concomitant]
     Route: 048
  5. PROPAVAN [Concomitant]
     Route: 048
  6. BISOPROLOL [Concomitant]
     Indication: HYPERTENSION
     Route: 048
  7. IBRUPROFEN [Concomitant]
     Route: 048

REACTIONS (3)
  - ADVERSE DRUG REACTION [None]
  - EYE DISORDER [None]
  - CLUSTER HEADACHE [None]
